FAERS Safety Report 9259103 (Version 3)
Quarter: 2013Q2

REPORT INFORMATION
  Report Type: Spontaneous
  Country: JP (occurrence: JP)
  Receive Date: 20130426
  Receipt Date: 20130524
  Transmission Date: 20140414
  Serious: Yes (Hospitalization)
  Sender: FDA-Public Use
  Company Number: JP-PFIZER INC-2013119997

PATIENT
  Age: 50 Year
  Sex: Female
  Weight: 50 kg

DRUGS (3)
  1. ZITHROMAC SR [Suspect]
     Indication: PERIODONTITIS
     Dosage: 2 G/DAY
     Route: 048
     Dates: start: 20130413, end: 20130413
  2. LOXONIN [Suspect]
     Indication: ANALGESIC THERAPY
     Dosage: 60 MG, 3X/DAY
     Route: 048
     Dates: start: 20130413, end: 20130413
  3. MIYA BM [Concomitant]
     Indication: PROPHYLAXIS
     Dosage: 3 TIMES DAILY (DOSE UNKNOWN)
     Route: 048
     Dates: start: 20130413, end: 20130413

REACTIONS (1)
  - Enterocolitis haemorrhagic [Recovered/Resolved]
